FAERS Safety Report 12998316 (Version 1)
Quarter: 2016Q4

REPORT INFORMATION
  Report Type: Spontaneous
  Country: US (occurrence: US)
  Receive Date: 20161203
  Receipt Date: 20161203
  Transmission Date: 20170207
  Serious: Yes (Disabling)
  Sender: FDA-Public Use
  Company Number: None

PATIENT
  Age: 54 Year
  Sex: Male
  Weight: 60.75 kg

DRUGS (6)
  1. MIRTAZAPINE. [Suspect]
     Active Substance: MIRTAZAPINE
     Indication: SLEEP DISORDER
     Route: 048
  2. SERTRALINE [Concomitant]
     Active Substance: SERTRALINE HYDROCHLORIDE
  3. LEVOTHYROXINE. [Concomitant]
     Active Substance: LEVOTHYROXINE
  4. OMEPRAZOLE. [Concomitant]
     Active Substance: OMEPRAZOLE
  5. MULTIVITAMIN [Concomitant]
     Active Substance: VITAMINS
  6. PROTEIN POWDER [Concomitant]

REACTIONS (5)
  - Panic attack [None]
  - Chest discomfort [None]
  - Dyspepsia [None]
  - Memory impairment [None]
  - Sleep disorder [None]

NARRATIVE: CASE EVENT DATE: 20161201
